FAERS Safety Report 6945398-5 (Version None)
Quarter: 2010Q3

REPORT INFORMATION
  Report Type: 
  Country: None (occurrence: None)
  Receive Date: 20100827
  Receipt Date: 20100817
  Transmission Date: 20110219
  Serious: Yes (Hospitalization)
  Sender: FDA-Public Use
  Company Number: FR-JNJFOC-20100703126

PATIENT
  Age: 43 Year
  Sex: Female
  Weight: 70 kg

DRUGS (6)
  1. REMICADE [Suspect]
     Indication: CROHN'S DISEASE
     Dosage: 3RD DOSE
     Route: 042
  2. REMICADE [Suspect]
     Dosage: 2ND DOSE
     Route: 042
  3. REMICADE [Suspect]
     Dosage: 1ST DOSE
     Route: 042
  4. ROMIPLOSTIM [Concomitant]
     Indication: THROMBOCYTOPENIA
     Route: 058
  5. ROMIPLOSTIM [Concomitant]
     Dosage: STARTED 75 MCG ON 25MAY2010 AND INCREASED TO 150MCG ON 01JUN2010
     Route: 058
  6. NORETHISTERONE [Concomitant]

REACTIONS (3)
  - ANXIETY [None]
  - MAJOR DEPRESSION [None]
  - SUICIDAL IDEATION [None]
